FAERS Safety Report 10195085 (Version 1)
Quarter: 2014Q2

REPORT INFORMATION
  Report Type: Spontaneous
  Country: US (occurrence: US)
  Receive Date: 20140526
  Receipt Date: 20140526
  Transmission Date: 20141212
  Serious: Yes (Hospitalization, Other)
  Sender: FDA-Public Use
  Company Number: US-PFIZER INC-2014140589

PATIENT
  Age: 56 Year
  Sex: Male
  Weight: 149.66 kg

DRUGS (7)
  1. LYRICA [Suspect]
     Indication: FIBROMYALGIA
     Dosage: UNK
     Dates: start: 2010
  2. TRAMADOL [Concomitant]
     Dosage: 50 MG, 4X/DAY
  3. PROPRANOLOL [Concomitant]
     Dosage: 40 MG, 2X/DAY
  4. HYDROCHLOROTHIAZIDE [Concomitant]
     Dosage: 25 MG, 2X/DAY
  5. ALLOPURINOL [Concomitant]
     Dosage: 100 MG, 1X/DAY
  6. ZANTAC [Concomitant]
     Dosage: 150 MG, 2X/DAY
  7. IRON [Concomitant]
     Indication: ANAEMIA
     Dosage: 27 MG, 1X/DAY

REACTIONS (2)
  - Crohn^s disease [Unknown]
  - Haemorrhage [Unknown]
